FAERS Safety Report 12349085 (Version 2)
Quarter: 2016Q2

REPORT INFORMATION
  Report Type: Spontaneous
  Country: US (occurrence: US)
  Receive Date: 20160509
  Receipt Date: 20160526
  Transmission Date: 20160815
  Serious: Yes (Other)
  Sender: FDA-Public Use
  Company Number: US-ACTELION-A-NJ2016-132340

PATIENT
  Age: 15 Month
  Sex: Male

DRUGS (4)
  1. TRACLEER [Suspect]
     Active Substance: BOSENTAN
     Indication: PULMONARY HYPERTENSION
     Dosage: 15.6 NG/KG, PER MIN
     Route: 048
     Dates: start: 20160403, end: 20160412
  2. SILDENAFIL. [Concomitant]
     Active Substance: SILDENAFIL
     Indication: PULMONARY ARTERIAL HYPERTENSION
  3. TRACLEER [Suspect]
     Active Substance: BOSENTAN
     Dosage: 15.6 MG, BID
     Route: 048
     Dates: start: 20150824, end: 20160226
  4. TRACLEER [Suspect]
     Active Substance: BOSENTAN
     Dosage: 15.6 MG, QD
     Route: 048
     Dates: start: 20150724

REACTIONS (3)
  - Aspartate aminotransferase increased [Recovering/Resolving]
  - Alanine aminotransferase increased [Recovering/Resolving]
  - Liver function test increased [Recovering/Resolving]

NARRATIVE: CASE EVENT DATE: 20150918
